FAERS Safety Report 8622900-9 (Version None)
Quarter: 2012Q3

REPORT INFORMATION
  Report Type: 
  Country: None (occurrence: None)
  Receive Date: 20120827
  Receipt Date: 20120820
  Transmission Date: 20120928
  Serious: Yes (Other)
  Sender: FDA-Public Use
  Company Number: PHHY2012CA071234

PATIENT
  Sex: Male

DRUGS (16)
  1. ZOLEDRONOC ACID [Suspect]
     Dosage: UNK UKN, UNK
     Route: 042
     Dates: start: 20100922
  2. ADALAT CC [Concomitant]
  3. VENLAFAXINE [Concomitant]
     Dosage: 150 MG, UNK
  4. CRESTOR [Concomitant]
     Dosage: 5 MG, UNK
  5. DOMPERIDONE [Concomitant]
     Dosage: II (BID), DAILY
  6. MIRTAZAPINE [Concomitant]
     Dosage: 20 MG, UNK
  7. ZOLEDRONOC ACID [Suspect]
     Dosage: 5 MG, UNK
     Route: 042
     Dates: start: 20111125
  8. ZOLEDRONOC ACID [Suspect]
     Indication: OSTEOPOROSIS
     Dosage: UNK UKN, UNK
     Route: 042
     Dates: start: 20080923
  9. PANTOPRAZOLE SODIUM [Concomitant]
     Dosage: 40 MG, UNK
  10. INSULIN INJECTION [Concomitant]
  11. ZOLEDRONOC ACID [Suspect]
     Dosage: UNK UKN, UNK
     Route: 042
     Dates: start: 20090930
  12. CREON [Concomitant]
     Dosage: TII TAB/MEAL
  13. DELATESTRYL [Concomitant]
     Dosage: QMONTH
     Route: 058
  14. CARBAMAZEPINE [Concomitant]
     Dosage: 200 MG, UNK
  15. CLONAZEPAM [Concomitant]
     Dosage: 4 MG, UNK
  16. ABILIFY [Concomitant]
     Dosage: 5 MG, UNK

REACTIONS (3)
  - INJURY [None]
  - MUSCLE SPASMS [None]
  - UPPER LIMB FRACTURE [None]
